FAERS Safety Report 13765933 (Version 2)
Quarter: 2017Q3

REPORT INFORMATION
  Report Type: Spontaneous
  Country: GB (occurrence: GB)
  Receive Date: 20170718
  Receipt Date: 20170731
  Transmission Date: 20171127
  Serious: Yes (Other)
  Sender: FDA-Public Use
  Company Number: GB-MYLANLABS-2017M1038363

PATIENT

DRUGS (2)
  1. AMISULPRIDE [Concomitant]
     Active Substance: AMISULPRIDE
     Indication: SCHIZOPHRENIA
     Dosage: 1200 MG, QD
     Route: 048
     Dates: start: 20140804
  2. CLOZARIL [Suspect]
     Active Substance: CLOZAPINE
     Indication: SCHIZOPHRENIA
     Dosage: 200 MG, QD
     Route: 048
     Dates: start: 20140804, end: 20170616

REACTIONS (5)
  - Lower respiratory tract infection [Unknown]
  - Otitis externa [Recovered/Resolved]
  - Blood test abnormal [Recovered/Resolved]
  - Impaired self-care [Unknown]
  - Malaise [Unknown]

NARRATIVE: CASE EVENT DATE: 20170616
